FAERS Safety Report 18243344 (Version 3)
Quarter: 2020Q4

REPORT INFORMATION
  Report Type: Spontaneous
  Country: US (occurrence: US)
  Receive Date: 20200908
  Receipt Date: 20201027
  Transmission Date: 20210113
  Serious: Yes (Hospitalization, Other)
  Sender: FDA-Public Use
  Company Number: US-ASTRAZENECA-2020SF13097

PATIENT
  Sex: Male

DRUGS (1)
  1. BYDUREON [Suspect]
     Active Substance: EXENATIDE
     Dosage: 2 MG IN 65 ML
     Route: 065

REACTIONS (9)
  - Gastric infection [Unknown]
  - Hepatic failure [Unknown]
  - Pancreatitis [Unknown]
  - Pyrexia [Unknown]
  - Renal failure [Recovered/Resolved]
  - Multi-organ disorder [Unknown]
  - Pancreatic cyst [Unknown]
  - Skin mass [Unknown]
  - Vomiting [Unknown]
